FAERS Safety Report 9305765 (Version 1)
Quarter: 2013Q2

REPORT INFORMATION
  Report Type: Spontaneous
  Country: US (occurrence: None)
  Receive Date: 20130522
  Receipt Date: 20130522
  Transmission Date: 20140414
  Serious: No
  Sender: FDA-Public Use
  Company Number: None

PATIENT
  Age: 64 Year
  Sex: Female

DRUGS (2)
  1. AFINITOR [Suspect]
     Route: 048
     Dates: start: 201303
  2. AFINITOR [Suspect]
     Route: 048
     Dates: start: 201303

REACTIONS (1)
  - Blood cholesterol increased [None]
